FAERS Safety Report 16318647 (Version 1)
Quarter: 2019Q2

REPORT INFORMATION
  Report Type: Spontaneous
  Country: US (occurrence: US)
  Receive Date: 20190516
  Receipt Date: 20190516
  Transmission Date: 20190711
  Serious: Yes (Death, Life-Threatening, Other)
  Sender: FDA-Public Use
  Company Number: US-FRESENIUS KABI-FK201905333

PATIENT
  Age: 63 Year
  Sex: Male
  Weight: 103 kg

DRUGS (5)
  1. HEPARIN SODIUM INJECTION, USP [Suspect]
     Active Substance: HEPARIN SODIUM
     Dosage: FOR ACT: 376 (UNITS NOT PROVIDED)
     Route: 040
     Dates: start: 20190325
  2. FUROSEMIDE SODIUM [Concomitant]
     Active Substance: FUROSEMIDE SODIUM
     Indication: FLUID RETENTION
     Dosage: UNKNOWN
     Route: 065
  3. HEPARIN SODIUM INJECTION, USP [Suspect]
     Active Substance: HEPARIN SODIUM
     Dosage: FOR ACT: 376 (UNITS NOT PROVIDED)
     Route: 040
     Dates: start: 20190325
  4. HEPARIN SODIUM INJECTION, USP [Suspect]
     Active Substance: HEPARIN SODIUM
     Dosage: FOR ACT: 320 (UNITS NOT PROVIDED)
     Route: 040
     Dates: start: 20190325
  5. HEPARIN SODIUM INJECTION, USP [Suspect]
     Active Substance: HEPARIN SODIUM
     Indication: ANTICOAGULANT THERAPY
     Dosage: FOR ACT: 118 (UNITS NOT PROVIDED)
     Route: 040
     Dates: start: 20190325

REACTIONS (3)
  - Therapeutic product effect decreased [Unknown]
  - Cardiac arrest [Fatal]
  - Cardiogenic shock [Unknown]

NARRATIVE: CASE EVENT DATE: 20190325
